FAERS Safety Report 5364812-2 (Version None)
Quarter: 2007Q2

REPORT INFORMATION
  Report Type: 
  Country: None (occurrence: None)
  Receive Date: 20070530
  Receipt Date: 20070113
  Transmission Date: 20071010
  Serious: No
  Sender: FDA-Public Use
  Company Number: 2006PV011466

PATIENT
  Age: 75 Year
  Sex: Female
  Weight: 77.1115 kg

DRUGS (6)
  1. BYETTA [Suspect]
     Indication: DIABETES MELLITUS NON-INSULIN-DEPENDENT
     Dosage: 10 MCG;BID;SC  5 MCG;BID;SC  10 MCG;BID;SC  5 MCG;BID;SC
     Route: 058
     Dates: start: 20060101, end: 20060402
  2. BYETTA [Suspect]
     Indication: DIABETES MELLITUS NON-INSULIN-DEPENDENT
     Dosage: 10 MCG;BID;SC  5 MCG;BID;SC  10 MCG;BID;SC  5 MCG;BID;SC
     Route: 058
     Dates: start: 20061001, end: 20061201
  3. BYETTA [Suspect]
     Indication: DIABETES MELLITUS NON-INSULIN-DEPENDENT
     Dosage: 10 MCG;BID;SC  5 MCG;BID;SC  10 MCG;BID;SC  5 MCG;BID;SC
     Route: 058
     Dates: start: 20060403
  4. BYETTA [Suspect]
     Indication: DIABETES MELLITUS NON-INSULIN-DEPENDENT
     Dosage: 10 MCG;BID;SC  5 MCG;BID;SC  10 MCG;BID;SC  5 MCG;BID;SC
     Route: 058
     Dates: start: 20061201
  5. GLUCOPHAGE [Concomitant]
  6. GLIPIZIDE [Concomitant]

REACTIONS (4)
  - BLOOD GLUCOSE DECREASED [None]
  - BLOOD GLUCOSE INCREASED [None]
  - HEADACHE [None]
  - NAUSEA [None]
